FAERS Safety Report 25111626 (Version 1)
Quarter: 2025Q1

REPORT INFORMATION
  Report Type: Spontaneous
  Country: GB (occurrence: GB)
  Receive Date: 20250324
  Receipt Date: 20250324
  Transmission Date: 20250408
  Serious: Yes (Other)
  Sender: MYLAN
  Company Number: GB-MHRA-TPP37078755C8647499YC1742210273764

PATIENT
  Age: 88 Year
  Sex: Female
  Weight: 55 kg

DRUGS (7)
  1. FAMOTIDINE [Suspect]
     Active Substance: FAMOTIDINE
     Indication: Product used for unknown indication
     Dosage: 20 MILLIGRAM, BID
     Dates: start: 20250211
  2. ATORVASTATIN [Concomitant]
     Active Substance: ATORVASTATIN
     Indication: Ill-defined disorder
     Dosage: 1 DOSAGE FORM, QD (1 TABLET ONCE A DAY)
     Dates: start: 20240528
  3. Hydramed [Concomitant]
     Indication: Ill-defined disorder
     Dates: start: 20240528, end: 20250123
  4. LEVOTHYROXINE [Concomitant]
     Active Substance: LEVOTHYROXINE
     Indication: Ill-defined disorder
     Dosage: 1 DOSAGE FORM, AM (TAKE ONE EACH MORNING)
     Dates: start: 20240528
  5. Xailin night [Concomitant]
     Indication: Ill-defined disorder
     Dosage: QD (APPLY TO THE AFFECTED EYE(S) AT NIGHT)
     Dates: start: 20240528
  6. Calci d [Concomitant]
     Indication: Ill-defined disorder
     Dosage: 1 DOSAGE FORM, QD (TAKE ONE DAILY AT LUNCHTIME)
     Dates: start: 20240617
  7. Aactive ha pf [Concomitant]
     Indication: Ill-defined disorder

REACTIONS (2)
  - Hallucination [Recovered/Resolved]
  - Nightmare [Unknown]
